FAERS Safety Report 11926457 (Version 1)
Quarter: 2016Q1

REPORT INFORMATION
  Report Type: Spontaneous
  Country: US (occurrence: None)
  Receive Date: 20160115
  Receipt Date: 20160115
  Transmission Date: 20160526
  Serious: Yes (Hospitalization, Other)
  Sender: FDA-Public Use
  Company Number: None

PATIENT
  Sex: Male

DRUGS (1)
  1. LIOTHYRONINE, 15MCG, 30MCG, 75 MCG [Suspect]
     Active Substance: LIOTHYRONINE
     Dosage: 15MCG, 30MCG,75 MCG

REACTIONS (3)
  - Drug dispensing error [None]
  - Product formulation issue [None]
  - Hyperthyroidism [None]
